FAERS Safety Report 9916745 (Version 1)
Quarter: 2014Q1

REPORT INFORMATION
  Report Type: Spontaneous
  Country: GB (occurrence: GB)
  Receive Date: 20140221
  Receipt Date: 20140221
  Transmission Date: 20141002
  Serious: Yes (Other)
  Sender: FDA-Public Use
  Company Number: GB-UCBSA-112540

PATIENT
  Age: 71 Year
  Sex: Female
  Weight: 80 kg

DRUGS (8)
  1. CO-CODAMOL [Suspect]
     Dates: start: 20140128
  2. CETIRIZINE [Concomitant]
     Dates: start: 20131025
  3. CLONIDINE [Concomitant]
     Dates: start: 20140116
  4. FLECAINIDE ACETATE [Concomitant]
     Dates: start: 20131108
  5. HYDROCORTISONE [Concomitant]
     Dates: start: 20140128
  6. LIDOCAINE [Concomitant]
     Dates: start: 20131015, end: 20140111
  7. RAMIPRIL [Concomitant]
     Dates: start: 20131025
  8. WARFARIN SODIUM [Concomitant]
     Dates: start: 20131108

REACTIONS (2)
  - Abdominal discomfort [Recovered/Resolved]
  - Dizziness [Recovered/Resolved]
